FAERS Safety Report 4389746-1 (Version None)
Quarter: 2004Q2

REPORT INFORMATION
  Report Type: 
  Country: None (occurrence: None)
  Receive Date: 20040624
  Receipt Date: 20030610
  Transmission Date: 20050107
  Serious: No
  Sender: FDA-Public Use
  Company Number: 2003UW06426

PATIENT
  Age: 24 Month
  Weight: 10.4327 kg

DRUGS (1)
  1. PULMICORT RESPULES [Suspect]
     Indication: WHEEZING
     Dosage: 0.25 MG BID IH
     Route: 055
     Dates: start: 20030508, end: 20030509

REACTIONS (2)
  - EYELID OEDEMA [None]
  - PERIORBITAL OEDEMA [None]
